FAERS Safety Report 5907543-X (Version None)
Quarter: 2008Q4

REPORT INFORMATION
  Report Type: 
  Country: None (occurrence: None)
  Receive Date: 20081003
  Receipt Date: 20080926
  Transmission Date: 20090506
  Serious: Yes (Other)
  Sender: FDA-Public Use
  Company Number: GB-WYE-G02070508

PATIENT
  Sex: Male

DRUGS (13)
  1. EFFEXOR [Suspect]
     Route: 048
     Dates: end: 20080728
  2. SYMBICORT [Concomitant]
     Route: 055
     Dates: start: 20080707
  3. VALPROATE SODIUM [Concomitant]
     Dates: end: 20080723
  4. SULFASALAZINE [Concomitant]
     Dates: start: 20080707
  5. PREDNISOLONE [Concomitant]
     Dosage: 5 MG EVERY
  6. ALENDRONIC ACID [Concomitant]
  7. ABATACEPT [Concomitant]
     Dosage: 40 MG EVERY
  8. ACETYLSALICYLIC ACID SRT [Concomitant]
     Route: 048
  9. CIALIS [Concomitant]
     Dosage: 10 MG (FREQUENCY UNKNOWN)
  10. EFFEXOR XR [Suspect]
     Route: 048
     Dates: end: 20080728
  11. ATORVASTATIN [Concomitant]
     Route: 048
  12. NORTRIPTYLINE HCL [Suspect]
     Dosage: 75 MG FREQUENCY UNKNOWN
     Route: 048
     Dates: end: 20080627
  13. AMLODIPINE [Concomitant]
     Route: 048

REACTIONS (2)
  - MYELODYSPLASTIC SYNDROME [None]
  - THROMBOCYTOPENIA [None]
